FAERS Safety Report 11104053 (Version 1)
Quarter: 2015Q2

REPORT INFORMATION
  Report Type: Spontaneous
  Country: US (occurrence: None)
  Receive Date: 20150508
  Receipt Date: 20150508
  Transmission Date: 20150821
  Serious: Yes (Other)
  Sender: FDA-Public Use
  Company Number: None

PATIENT
  Age: 60 Year
  Sex: Female
  Weight: 81.65 kg

DRUGS (9)
  1. CORGARD [Suspect]
     Active Substance: NADOLOL
     Indication: ATRIAL FIBRILLATION
     Dosage: 1 ONCE DAILY TAKEN BY MOUTH
     Route: 048
     Dates: start: 20141001, end: 20150413
  2. SIMVASTIN [Concomitant]
     Active Substance: SIMVASTATIN
  3. MULTI VITAMIN [Concomitant]
     Active Substance: VITAMINS
  4. AMBIEN [Concomitant]
     Active Substance: ZOLPIDEM TARTRATE
  5. CARDIZEM [Concomitant]
     Active Substance: DILTIAZEM HYDROCHLORIDE
  6. KLONOPIN [Concomitant]
     Active Substance: CLONAZEPAM
  7. CELEXA [Suspect]
     Active Substance: CITALOPRAM HYDROBROMIDE
  8. GLUCOSEMINE/CONDROITIN [Concomitant]
  9. TIKOSYN [Concomitant]
     Active Substance: DOFETILIDE

REACTIONS (4)
  - Asthenia [None]
  - Alopecia [None]
  - Atrial fibrillation [None]
  - Fatigue [None]

NARRATIVE: CASE EVENT DATE: 20150507
